FAERS Safety Report 17755259 (Version 2)
Quarter: 2020Q3

REPORT INFORMATION
  Report Type: Spontaneous
  Country: US (occurrence: US)
  Receive Date: 20200507
  Receipt Date: 20200826
  Transmission Date: 20201102
  Serious: Yes (Disabling, Other)
  Sender: FDA-Public Use
  Company Number: US-PFIZER INC-2020182284

PATIENT
  Age: 15 Year
  Sex: Male
  Weight: 136.08 kg

DRUGS (2)
  1. DILANTIN [Suspect]
     Active Substance: PHENYTOIN
     Indication: SEIZURE
     Dosage: UNK
     Route: 048
  2. DILANTIN [Suspect]
     Active Substance: PHENYTOIN
     Dosage: 500 MG, DAILY (NIGHTLY)
     Route: 048
     Dates: start: 2000

REACTIONS (5)
  - Walking disability [Unknown]
  - Dehydration [Recovering/Resolving]
  - Seizure [Recovering/Resolving]
  - Anxiety [Recovering/Resolving]
  - Cerebral palsy [Unknown]

NARRATIVE: CASE EVENT DATE: 1985
